FAERS Safety Report 13717613 (Version 2)
Quarter: 2017Q3

REPORT INFORMATION
  Report Type: Spontaneous
  Country: JP (occurrence: JP)
  Receive Date: 20170705
  Receipt Date: 20170713
  Transmission Date: 20171127
  Serious: Yes (Hospitalization, Other)
  Sender: FDA-Public Use
  Company Number: JP-GLAXOSMITHKLINE-JP2017JPN074702

PATIENT
  Age: 18 Year
  Sex: Male

DRUGS (4)
  1. EXCEGRAN [Concomitant]
     Active Substance: ZONISAMIDE
     Dosage: 200 MG, BID
     Dates: start: 20150818
  2. LAMICTAL [Suspect]
     Active Substance: LAMOTRIGINE
     Indication: EPILEPSY
     Dosage: 200 MG, BID
     Route: 048
     Dates: start: 20150530, end: 201508
  3. TEGRETOL [Concomitant]
     Active Substance: CARBAMAZEPINE
     Dosage: 400 MG, BID
     Dates: start: 20120720
  4. MEIACT [Concomitant]
     Active Substance: CEFDITOREN PIVOXIL
     Dosage: 300 MG, BID
     Dates: start: 20150822

REACTIONS (4)
  - Drug eruption [Unknown]
  - Pyrexia [Recovered/Resolved]
  - Viral infection [Unknown]
  - Rash [Recovered/Resolved]

NARRATIVE: CASE EVENT DATE: 20150825
